FAERS Safety Report 15555516 (Version 1)
Quarter: 2018Q4

REPORT INFORMATION
  Report Type: Spontaneous
  Country: US (occurrence: US)
  Receive Date: 20181026
  Receipt Date: 20181026
  Transmission Date: 20190205
  Serious: No
  Sender: FDA-Public Use
  Company Number: US-TEVA-2018-US-966241

PATIENT
  Sex: Male

DRUGS (1)
  1. ALENDRONATE SODIUM TEVA [Suspect]
     Active Substance: ALENDRONATE SODIUM
     Indication: BONE DENSITY ABNORMAL
     Dosage: 70 MG, ONCE EVERY 7 DAYS
     Route: 048
     Dates: start: 20181016

REACTIONS (1)
  - Diarrhoea [Unknown]
